FAERS Safety Report 15655288 (Version 1)
Quarter: 2018Q4

REPORT INFORMATION
  Report Type: Spontaneous
  Country: US (occurrence: US)
  Receive Date: 20181126
  Receipt Date: 20181126
  Transmission Date: 20190205
  Serious: No
  Sender: FDA-Public Use
  Company Number: US-ASTRAZENECA-2018SF46048

PATIENT
  Sex: Female

DRUGS (2)
  1. BYDUREON BCISE [Concomitant]
     Active Substance: EXENATIDE
  2. BYDUREON [Suspect]
     Active Substance: EXENATIDE
     Route: 065

REACTIONS (4)
  - Dizziness [Unknown]
  - Lethargy [Unknown]
  - Burning sensation [Unknown]
  - Weight decreased [Unknown]
